FAERS Safety Report 7430267-7 (Version None)
Quarter: 2011Q2

REPORT INFORMATION
  Report Type: 
  Country: None (occurrence: None)
  Receive Date: 20110421
  Receipt Date: 20110330
  Transmission Date: 20111010
  Serious: No
  Sender: FDA-Public Use
  Company Number: US-B.I. PHARMACEUTICALS,INC./RIDGEFIELD-2011-BP-09652BP

PATIENT
  Age: 88 Year
  Sex: Female

DRUGS (8)
  1. METOPROLOL [Concomitant]
     Indication: HYPERTENSION
  2. ALTACE [Concomitant]
     Indication: CARDIAC FAILURE CONGESTIVE
  3. DIGOXIN [Concomitant]
     Indication: CARDIAC FAILURE CONGESTIVE
  4. PRADAXA [Suspect]
     Indication: ATRIAL FIBRILLATION
     Dosage: 300 MG
     Route: 048
     Dates: start: 20110303
  5. REGLAN [Concomitant]
  6. BUMEX [Concomitant]
     Indication: CARDIAC FAILURE CONGESTIVE
  7. SYNTHROID [Concomitant]
     Indication: HYPOTHYROIDISM
  8. ZOCOR [Concomitant]
     Indication: BLOOD CHOLESTEROL INCREASED

REACTIONS (5)
  - FATIGUE [None]
  - DYSPEPSIA [None]
  - CHEST DISCOMFORT [None]
  - DECREASED APPETITE [None]
  - ABDOMINAL DISCOMFORT [None]
